FAERS Safety Report 17990864 (Version 1)
Quarter: 2020Q3

REPORT INFORMATION
  Report Type: Spontaneous
  Country: PT (occurrence: PT)
  Receive Date: 20200707
  Receipt Date: 20200707
  Transmission Date: 20201103
  Serious: Yes (Other)
  Sender: FDA-Public Use
  Company Number: PT-MYLANLABS-2020M1060462

PATIENT
  Age: 74 Year
  Sex: Female
  Weight: 85.7 kg

DRUGS (8)
  1. LOPINAVIR/RITONAVIR [Suspect]
     Active Substance: LOPINAVIR\RITONAVIR
     Indication: COVID-19 PNEUMONIA
     Dosage: UNK
     Route: 048
  2. ENOXAPARIN SODIUM. [Concomitant]
     Active Substance: ENOXAPARIN SODIUM
     Indication: COVID-19 PNEUMONIA
     Dosage: UNK
  3. PLAQUINOL [Suspect]
     Active Substance: HYDROXYCHLOROQUINE SULFATE
     Indication: COVID-19 PNEUMONIA
     Dosage: 200MG DE 12/12H
     Route: 048
     Dates: start: 20200327, end: 20200403
  4. PROPOFOL. [Concomitant]
     Active Substance: PROPOFOL
     Indication: COVID-19 PNEUMONIA
     Dosage: UNK
     Route: 042
  5. CLARITHROMYCIN. [Concomitant]
     Active Substance: CLARITHROMYCIN
     Indication: COVID-19 PNEUMONIA
     Dosage: UNK
  6. NOREPINEPHRINE. [Concomitant]
     Active Substance: NOREPINEPHRINE
     Indication: COVID-19 PNEUMONIA
     Dosage: UNK
     Route: 042
  7. ROCURONIUM BROMIDE. [Concomitant]
     Active Substance: ROCURONIUM BROMIDE
     Indication: COVID-19 PNEUMONIA
     Dosage: UNK
     Route: 042
  8. MORPHINE [Concomitant]
     Active Substance: MORPHINE
     Indication: COVID-19 PNEUMONIA
     Dosage: UNK

REACTIONS (3)
  - Off label use [Unknown]
  - Hepatic function abnormal [Recovered/Resolved]
  - COVID-19 treatment [Recovered/Resolved]

NARRATIVE: CASE EVENT DATE: 20200327
